FAERS Safety Report 6180231-3 (Version None)
Quarter: 2009Q2

REPORT INFORMATION
  Report Type: 
  Country: None (occurrence: None)
  Receive Date: 20090505
  Receipt Date: 20090430
  Transmission Date: 20091009
  Serious: Yes (Hospitalization)
  Sender: FDA-Public Use
  Company Number: FR-WYE-G03605309

PATIENT
  Sex: Female

DRUGS (3)
  1. TORISEL [Suspect]
     Indication: RENAL CANCER METASTATIC
     Dosage: 25 MG
     Route: 042
     Dates: start: 20090319, end: 20090319
  2. PLITICAN [Concomitant]
     Indication: PREMEDICATION
     Dosage: 50 MG
     Route: 042
     Dates: start: 20090319, end: 20090319
  3. POLARAMINE [Concomitant]
     Indication: PREMEDICATION
     Dosage: 5 MG
     Route: 042
     Dates: start: 20090319, end: 20090319

REACTIONS (4)
  - ANAPHYLACTIC SHOCK [None]
  - BACK PAIN [None]
  - BLOOD PRESSURE SYSTOLIC INCREASED [None]
  - DYSPNOEA [None]
